FAERS Safety Report 7041976-6 (Version None)
Quarter: 2010Q4

REPORT INFORMATION
  Report Type: 
  Country: None (occurrence: None)
  Receive Date: 20101013
  Receipt Date: 20100802
  Transmission Date: 20110411
  Serious: No
  Sender: FDA-Public Use
  Company Number: US-ASTRAZENECA-2010SE31316

PATIENT
  Age: 65 Year
  Sex: Male
  Weight: 117.9 kg

DRUGS (9)
  1. SYMBICORT [Suspect]
     Dosage: 160 MCG TWO TIMES A DAY
     Route: 055
  2. PRILOSEC [Concomitant]
  3. LASIX [Concomitant]
  4. MORPHINE SULFATE [Concomitant]
  5. XANAX [Concomitant]
  6. ACTOS [Concomitant]
  7. AMLODIPINE [Concomitant]
  8. PROZAC [Concomitant]
  9. ASPIRIN [Concomitant]

REACTIONS (1)
  - PSYCHOMOTOR HYPERACTIVITY [None]
